FAERS Safety Report 5001844-8 (Version None)
Quarter: 2006Q2

REPORT INFORMATION
  Report Type: 
  Country: None (occurrence: None)
  Receive Date: 20060515
  Receipt Date: 20060420
  Transmission Date: 20061013
  Serious: Yes (Hospitalization)
  Sender: FDA-Public Use
  Company Number: JP-JPN-A200601317

PATIENT
  Age: 73 Year
  Sex: Female
  Weight: 43 kg

DRUGS (11)
  1. VALTREX [Suspect]
     Indication: HERPES ZOSTER
     Dosage: 500G THREE TIMES PER DAY
     Route: 048
     Dates: start: 20060416, end: 20060417
  2. NORVASC [Suspect]
     Indication: HYPERTENSION
     Dosage: 5MG PER DAY
     Route: 048
     Dates: start: 20060315, end: 20060417
  3. ARASENA-A [Concomitant]
     Indication: HERPES ZOSTER
     Route: 061
  4. DIOVAN [Concomitant]
     Dosage: 80MG PER DAY
     Route: 048
     Dates: start: 20060315, end: 20060417
  5. TAKEPRON [Concomitant]
     Indication: GASTRIC ULCER
     Dosage: 30MG PER DAY
     Route: 048
     Dates: start: 20060315, end: 20060417
  6. MAGMITT [Concomitant]
     Indication: CONSTIPATION
     Dosage: 330MG THREE TIMES PER DAY
     Route: 048
     Dates: start: 20060315, end: 20060417
  7. UNIPHYL [Concomitant]
     Dosage: 200MG PER DAY
     Route: 048
     Dates: start: 20060315, end: 20060417
  8. LAMISIL [Concomitant]
     Indication: TINEA INFECTION
     Dosage: 125MG PER DAY
     Route: 048
     Dates: start: 20060330
  9. MUCOSOLVAN [Concomitant]
     Indication: BRONCHITIS
     Dosage: 45MG PER DAY
     Route: 048
     Dates: start: 20060413, end: 20060417
  10. FLOMOX [Concomitant]
     Indication: BRONCHITIS
     Dosage: 300MG PER DAY
     Route: 048
     Dates: start: 20060413, end: 20060417
  11. DICLOFENAC SODIUM [Concomitant]
     Indication: PAIN
     Route: 061
     Dates: start: 20060416, end: 20060417

REACTIONS (7)
  - DELIRIUM [None]
  - DEPRESSED LEVEL OF CONSCIOUSNESS [None]
  - DIALYSIS [None]
  - NAUSEA [None]
  - RENAL FAILURE ACUTE [None]
  - TOXIC INDUCED ENCEPHALOPATHY [None]
  - VOMITING [None]
